FAERS Safety Report 6746064-1 (Version None)
Quarter: 2010Q2

REPORT INFORMATION
  Report Type: 
  Country: None (occurrence: None)
  Receive Date: 20100526
  Receipt Date: 20100311
  Transmission Date: 20101027
  Serious: Yes (Hospitalization)
  Sender: FDA-Public Use
  Company Number: BCN-AS-2010-RR-089

PATIENT
  Age: 41 Year
  Sex: Female

DRUGS (1)
  1. ACETAMINOPHEN [Suspect]
     Dosage: ORALLY
     Route: 048

REACTIONS (6)
  - CHEST PAIN [None]
  - DYSPHAGIA [None]
  - EOSINOPHILIC OESOPHAGITIS [None]
  - HAEMORRHAGE [None]
  - OESOPHAGEAL PERFORATION [None]
  - OESOPHAGEAL STENOSIS [None]
